FAERS Safety Report 5032610-5 (Version None)
Quarter: 2006Q2

REPORT INFORMATION
  Report Type: 
  Country: None (occurrence: None)
  Receive Date: 20060620
  Receipt Date: 20060609
  Transmission Date: 20061013
  Serious: Yes (Other)
  Sender: FDA-Public Use
  Company Number: 2006074291

PATIENT
  Age: 39 Year
  Sex: Male
  Weight: 114.76 kg

DRUGS (5)
  1. XANAX [Suspect]
     Indication: ANXIETY
     Dosage: 280 MG (140 MG, 2 IN 1 D),
     Dates: start: 20030101
  2. LYRICA [Suspect]
     Indication: ILL-DEFINED DISORDER
     Dosage: 150 MG (75 MG, 2 IN 1 D),
     Dates: start: 20060401
  3. HYZAAR [Suspect]
     Indication: HYPERTENSION
     Dosage: 125 MG (125 MG, 1 IN 1 D),
     Dates: start: 20040101
  4. IBUPROFEN [Concomitant]
  5. VICODIN [Concomitant]

REACTIONS (7)
  - DRUG INEFFECTIVE [None]
  - HEADACHE [None]
  - HIP ARTHROPLASTY [None]
  - OEDEMA PERIPHERAL [None]
  - RASH [None]
  - SURGERY [None]
  - URTICARIA [None]
